FAERS Safety Report 7642538-X (Version None)
Quarter: 2011Q3

REPORT INFORMATION
  Report Type: 
  Country: None (occurrence: None)
  Receive Date: 20110728
  Receipt Date: 20110726
  Transmission Date: 20111222
  Serious: Yes (Other)
  Sender: FDA-Public Use
  Company Number: CN-ASTRAZENECA-2011SE44140

PATIENT
  Sex: Female

DRUGS (2)
  1. LIDOCAINE [Suspect]
     Indication: CAESAREAN SECTION
     Route: 008
  2. LIDOCAINE [Suspect]
     Dosage: 5 ML WHEN REQUIRED
     Route: 008

REACTIONS (1)
  - DYSPNOEA [None]
